FAERS Safety Report 18897443 (Version 1)
Quarter: 2021Q1

REPORT INFORMATION
  Report Type: Spontaneous
  Country: US (occurrence: US)
  Receive Date: 20210212
  Receipt Date: 20210212
  Transmission Date: 20210420
  Serious: Yes (Hospitalization)
  Sender: FDA-Public Use
  Company Number: None

PATIENT
  Sex: Male
  Weight: 71.67 kg

DRUGS (1)
  1. OLANZAPINE 40MG [Suspect]
     Active Substance: OLANZAPINE

REACTIONS (5)
  - Fatigue [None]
  - Dyspnoea [None]
  - Dysphagia [None]
  - Asthenia [None]
  - Pneumonia aspiration [None]

NARRATIVE: CASE EVENT DATE: 20200704
